FAERS Safety Report 14295233 (Version 1)
Quarter: 2017Q4

REPORT INFORMATION
  Report Type: Spontaneous
  Country: IT (occurrence: IT)
  Receive Date: 20171218
  Receipt Date: 20171218
  Transmission Date: 20180321
  Serious: Yes (Life-Threatening)
  Sender: FDA-Public Use
  Company Number: IT-CIPLA LTD.-2017IT23845

PATIENT

DRUGS (3)
  1. CARBOPLATIN. [Suspect]
     Active Substance: CARBOPLATIN
     Indication: OVARIAN CANCER
     Dosage: 580 MG, CYCLIC
     Route: 041
     Dates: start: 20170508, end: 20170825
  2. AVASTIN [Suspect]
     Active Substance: BEVACIZUMAB
     Indication: OVARIAN CANCER
     Dosage: 825 MG, CYCLIC
     Route: 042
     Dates: start: 20170530, end: 20170825
  3. PACLITAXEL. [Suspect]
     Active Substance: PACLITAXEL
     Indication: OVARIAN CANCER
     Dosage: 270 MG, CYCLIC
     Route: 041
     Dates: start: 20170508, end: 20170825

REACTIONS (1)
  - Mesenteric vein thrombosis [Recovered/Resolved]

NARRATIVE: CASE EVENT DATE: 20170915
